FAERS Safety Report 6944832-4 (Version None)
Quarter: 2010Q3

REPORT INFORMATION
  Report Type: 
  Country: None (occurrence: None)
  Receive Date: 20100827
  Receipt Date: 20100818
  Transmission Date: 20110219
  Serious: Yes (Other)
  Sender: FDA-Public Use
  Company Number: FR-PFIZER INC-2010103880

PATIENT
  Age: 73 Year
  Sex: Female
  Weight: 133.4 kg

DRUGS (7)
  1. ARACYTINE [Suspect]
     Indication: ACUTE MYELOID LEUKAEMIA
     Dosage: 200 MG, CYCLIC
     Route: 042
     Dates: start: 20091126, end: 20091202
  2. ZAVEDOS [Suspect]
     Indication: ACUTE MYELOID LEUKAEMIA
     Dosage: 16 MG, CYCLIC
     Route: 042
     Dates: start: 20091126, end: 20091130
  3. FASTURTEC [Suspect]
     Indication: NEOPLASM PROPHYLAXIS
     Dosage: 26.6 MG, CYCLIC
     Route: 042
     Dates: start: 20091126, end: 20091127
  4. BELUSTINE [Suspect]
     Indication: ACUTE MYELOID LEUKAEMIA
     Dosage: 400 MG, CYCLIC
     Route: 048
     Dates: start: 20091126, end: 20091126
  5. HYDREA [Suspect]
     Indication: ACUTE MYELOID LEUKAEMIA
     Dosage: 4000 MG, CYCLIC
     Route: 048
     Dates: start: 20091124, end: 20091124
  6. ZOPHREN [Suspect]
     Indication: VOMITING
     Dosage: 1 DF, CYCLIC
     Route: 042
     Dates: start: 20091126, end: 20091130
  7. EMEND [Concomitant]
     Indication: VOMITING
     Dosage: UNK
     Dates: start: 20091126, end: 20091128

REACTIONS (2)
  - BLOOD BILIRUBIN INCREASED [None]
  - CYTOLYTIC HEPATITIS [None]
